FAERS Safety Report 18427258 (Version 1)
Quarter: 2020Q4

REPORT INFORMATION
  Report Type: Report from Study
  Country: FR (occurrence: FR)
  Receive Date: 20201026
  Receipt Date: 20201026
  Transmission Date: 20210114
  Serious: Yes (Hospitalization)
  Sender: FDA-Public Use
  Company Number: FR-JNJFOC-20191130216

PATIENT
  Age: 10 Year
  Sex: Female
  Weight: 25.9 kg

DRUGS (9)
  1. VINCRISTINE [Concomitant]
     Active Substance: VINCRISTINE
     Indication: ACUTE LYMPHOCYTIC LEUKAEMIA
     Dosage: MOST RECENT DOSE ON 28/AUG/2019
     Route: 042
     Dates: start: 20190808
  2. PREDNISONE. [Concomitant]
     Active Substance: PREDNISONE
     Indication: ACUTE LYMPHOCYTIC LEUKAEMIA
     Dosage: MOST RECENT DOSE 03/SEP/2019
     Route: 048
     Dates: start: 20190806
  3. METHOTREXATE. [Suspect]
     Active Substance: METHOTREXATE
     Indication: ACUTE LYMPHOCYTIC LEUKAEMIA
     Dosage: MOST RECENT DOSE ON 08/NOV/2019
     Route: 037
     Dates: start: 20190802
  4. 6-MERCAPTOPURINE MONOHYDRATE [Suspect]
     Active Substance: MERCAPTOPURINE
     Indication: ACUTE LYMPHOCYTIC LEUKAEMIA
     Dosage: MOST RECENT DOSE ON 12/NOV/2019
     Route: 048
     Dates: start: 20190924
  5. DOXORUBICIN [Concomitant]
     Active Substance: DOXORUBICIN
     Indication: ACUTE LYMPHOCYTIC LEUKAEMIA
     Route: 042
     Dates: start: 20190806, end: 20190806
  6. MESNA. [Concomitant]
     Active Substance: MESNA
     Indication: ACUTE LYMPHOCYTIC LEUKAEMIA
     Dosage: MOST RECENT DOSE ON 30/OCT/2019
     Route: 042
     Dates: start: 20190924
  7. CYCLOPHOSPHAMIDE. [Suspect]
     Active Substance: CYCLOPHOSPHAMIDE
     Indication: ACUTE LYMPHOCYTIC LEUKAEMIA
     Dosage: MOST RECENT DOSE ON 30/OCT/2019
     Route: 042
     Dates: start: 20190924
  8. DARATUMUMAB [Suspect]
     Active Substance: DARATUMUMAB
     Indication: ACUTE LYMPHOCYTIC LEUKAEMIA
     Dosage: MOST RECENT DOSE ON 12/NOV/2019
     Route: 042
     Dates: start: 20190808
  9. CYTARABINE. [Suspect]
     Active Substance: CYTARABINE
     Indication: ACUTE LYMPHOCYTIC LEUKAEMIA
     Dosage: MOST RECENT DOSE ON 11/NOV/2019
     Route: 065
     Dates: start: 20190925

REACTIONS (1)
  - Febrile neutropenia [Recovered/Resolved]

NARRATIVE: CASE EVENT DATE: 20191118
